FAERS Safety Report 9705116 (Version 3)
Quarter: 2014Q1

REPORT INFORMATION
  Report Type: Spontaneous
  Country: US (occurrence: US)
  Receive Date: 20131122
  Receipt Date: 20140106
  Transmission Date: 20141002
  Serious: Yes (Hospitalization, Other)
  Sender: FDA-Public Use
  Company Number: US-ABBVIE-11P-163-0870223-00

PATIENT
  Age: 55 Year
  Sex: Female
  Weight: 55.39 kg

DRUGS (1)
  1. SYNTHROID [Suspect]
     Indication: HYPOTHYROIDISM
     Dates: start: 1992, end: 20111024

REACTIONS (25)
  - Cardiac disorder [Recovered/Resolved]
  - Gait disturbance [Recovered/Resolved]
  - Fibromyalgia [Not Recovered/Not Resolved]
  - Myalgia [Unknown]
  - Palpitations [Recovering/Resolving]
  - Convulsion [Recovered/Resolved]
  - Insomnia [Unknown]
  - Weight decreased [Recovered/Resolved]
  - Alopecia [Recovered/Resolved]
  - Skin tightness [Recovered/Resolved]
  - Panic attack [Recovered/Resolved]
  - Nodule [Recovered/Resolved]
  - Fear [Recovered/Resolved]
  - Therapeutic response unexpected [Not Recovered/Not Resolved]
  - Thyroid disorder [Not Recovered/Not Resolved]
  - Sensory disturbance [Recovered/Resolved]
  - Photopsia [Recovered/Resolved]
  - Anxiety [Recovering/Resolving]
  - Neuromyopathy [Recovered/Resolved]
  - Sensory disturbance [Recovered/Resolved]
  - Joint stiffness [Recovering/Resolving]
  - Blood immunoglobulin G decreased [Unknown]
  - Blood immunoglobulin A decreased [Unknown]
  - Blood immunoglobulin M increased [Unknown]
  - Carpal tunnel syndrome [Recovered/Resolved]
